FAERS Safety Report 4345315-0 (Version None)
Quarter: 2004Q2

REPORT INFORMATION
  Report Type: 
  Country: None (occurrence: None)
  Receive Date: 20040423
  Receipt Date: 20040414
  Transmission Date: 20050107
  Serious: Yes (Hospitalization, Other)
  Sender: FDA-Public Use
  Company Number: DE-GLAXOSMITHKLINE-B0330073A

PATIENT
  Age: 59 Year

DRUGS (8)
  1. COMBIVIR [Suspect]
     Route: 048
  2. KALETRA [Suspect]
     Route: 065
  3. FELODIPINE [Concomitant]
     Route: 065
  4. ATENOLOL [Concomitant]
     Route: 065
  5. RAMIPRIL [Concomitant]
     Route: 065
  6. ATORVASTATIN [Concomitant]
     Route: 065
  7. INSULIN [Concomitant]
     Dosage: 60UNIT PER DAY
     Route: 065
  8. EFAVIRENZ [Concomitant]
     Route: 065

REACTIONS (17)
  - ANURIA [None]
  - ASTHENIA [None]
  - BLOOD BILIRUBIN INCREASED [None]
  - BLOOD GLUCOSE INCREASED [None]
  - BLOOD PRESSURE DECREASED [None]
  - CARDIAC MURMUR [None]
  - DISTURBANCE IN ATTENTION [None]
  - GLYCOSURIA [None]
  - HAEMODYNAMIC INSTABILITY [None]
  - MENTAL DISORDER [None]
  - MULTI-ORGAN FAILURE [None]
  - NAUSEA [None]
  - RENAL FAILURE ACUTE [None]
  - RESPIRATORY FAILURE [None]
  - RHONCHI [None]
  - SOMNOLENCE [None]
  - VERTIGO [None]
